FAERS Safety Report 5328047-1 (Version None)
Quarter: 2007Q2

REPORT INFORMATION
  Report Type: 
  Country: None (occurrence: None)
  Receive Date: 20070517
  Receipt Date: 20070502
  Transmission Date: 20071010
  Serious: Yes (Other)
  Sender: FDA-Public Use
  Company Number: BR-GENENTECH-241491

PATIENT
  Age: 60 Year
  Sex: Male

DRUGS (4)
  1. AVASTIN [Suspect]
     Indication: COLORECTAL CANCER
     Route: 042
     Dates: start: 20061115
  2. FLUOROURACIL [Concomitant]
     Indication: COLORECTAL CANCER
  3. FOLINIC ACID [Concomitant]
     Indication: COLORECTAL CANCER
  4. OXALIPLATIN [Concomitant]

REACTIONS (2)
  - DEEP VEIN THROMBOSIS [None]
  - HYPERGLYCAEMIA [None]
